FAERS Safety Report 16299576 (Version 1)
Quarter: 2019Q2

REPORT INFORMATION
  Report Type: Spontaneous
  Country: FR (occurrence: FR)
  Receive Date: 20190510
  Receipt Date: 20190510
  Transmission Date: 20190711
  Serious: Yes (Other)
  Sender: FDA-Public Use
  Company Number: FR-AUROBINDO-AUR-APL-2019-019305

PATIENT

DRUGS (8)
  1. KETOPROFEN. [Suspect]
     Active Substance: KETOPROFEN
     Indication: NEPHROLITHIASIS
     Dosage: 0.5 DF, QD
     Route: 065
  2. PROPANOLOL [Concomitant]
     Active Substance: PROPRANOLOL HYDROCHLORIDE
     Indication: PRODUCT USED FOR UNKNOWN INDICATION
     Dosage: UNK
     Route: 065
  3. TAREG [Concomitant]
     Active Substance: VALSARTAN
     Indication: PRODUCT USED FOR UNKNOWN INDICATION
     Dosage: UNK
     Route: 065
  4. KETOPROFEN. [Suspect]
     Active Substance: KETOPROFEN
     Indication: PAIN
     Dosage: UNK UNK, ONCE A DAY, UNK UNK, QD
     Route: 065
     Dates: start: 201805
  5. KETOPROFEN. [Suspect]
     Active Substance: KETOPROFEN
     Indication: OSTEOARTHRITIS
  6. KETOPROFEN. [Suspect]
     Active Substance: KETOPROFEN
     Indication: TENDONITIS
  7. KETOPROFEN. [Suspect]
     Active Substance: KETOPROFEN
     Indication: INFLAMMATION
     Dosage: 1 DF, QD
     Route: 065
  8. KETOPROFEN. [Suspect]
     Active Substance: KETOPROFEN
     Indication: FIBROMYALGIA

REACTIONS (3)
  - Renal impairment [Recovered/Resolved]
  - Anuria [Recovered/Resolved]
  - Urinary retention [Recovered/Resolved]

NARRATIVE: CASE EVENT DATE: 201805
